FAERS Safety Report 5453991-4 (Version None)
Quarter: 2007Q3

REPORT INFORMATION
  Report Type: 
  Country: None (occurrence: None)
  Receive Date: 20070917
  Receipt Date: 20070905
  Transmission Date: 20080115
  Serious: Yes (Other)
  Sender: FDA-Public Use
  Company Number: US-AMGEN-US242220

PATIENT
  Sex: Female

DRUGS (1)
  1. ENBREL [Suspect]
     Indication: PSORIASIS
     Route: 058
     Dates: start: 20060316

REACTIONS (5)
  - CELLULITIS [None]
  - EAR INFECTION [None]
  - FACIAL PALSY [None]
  - PSORIASIS [None]
  - SINUSITIS [None]
